FAERS Safety Report 10752719 (Version 2)
Quarter: 2015Q1

REPORT INFORMATION
  Report Type: Report from Study
  Country: US (occurrence: US)
  Receive Date: 20150130
  Receipt Date: 20150303
  Transmission Date: 20150721
  Serious: Yes (Hospitalization, Other)
  Sender: FDA-Public Use
  Company Number: US-ABBVIE-15P-163-1340322-00

PATIENT
  Age: 45 Year
  Sex: Female

DRUGS (8)
  1. MULTIVITAMIN [Concomitant]
     Active Substance: VITAMINS
     Indication: PRODUCT USED FOR UNKNOWN INDICATION
  2. XARELTO [Suspect]
     Active Substance: RIVAROXABAN
     Indication: THROMBOSIS
     Route: 048
     Dates: end: 20150126
  3. ZYRTEC [Concomitant]
     Active Substance: CETIRIZINE HYDROCHLORIDE
     Indication: PRODUCT USED FOR UNKNOWN INDICATION
     Route: 048
  4. LUPRON DEPOT [Suspect]
     Active Substance: LEUPROLIDE ACETATE
     Indication: ENDOMETRIOSIS
     Route: 050
     Dates: start: 20141219
  5. XARELTO [Suspect]
     Active Substance: RIVAROXABAN
     Route: 048
     Dates: start: 20150126
  6. LYRICA [Suspect]
     Active Substance: PREGABALIN
     Indication: PAIN IN EXTREMITY
     Route: 065
     Dates: start: 201502, end: 20150218
  7. VITAMIN B12 [Concomitant]
     Active Substance: CYANOCOBALAMIN
     Indication: PRODUCT USED FOR UNKNOWN INDICATION
     Route: 048
  8. LINZESS [Concomitant]
     Active Substance: LINACLOTIDE
     Indication: PRODUCT USED FOR UNKNOWN INDICATION
     Route: 048
     Dates: end: 20150126

REACTIONS (10)
  - Pulmonary embolism [Not Recovered/Not Resolved]
  - Pelvic mass [Not Recovered/Not Resolved]
  - Chest pain [Not Recovered/Not Resolved]
  - Diarrhoea [Recovered/Resolved]
  - Thrombosis [Not Recovered/Not Resolved]
  - Suicidal ideation [Recovered/Resolved]
  - Vitamin D decreased [Unknown]
  - Pain in extremity [Unknown]
  - Adnexa uteri pain [Not Recovered/Not Resolved]
  - Depression [Recovered/Resolved]

NARRATIVE: CASE EVENT DATE: 201501
